FAERS Safety Report 5907377-6 (Version None)
Quarter: 2008Q4

REPORT INFORMATION
  Report Type: 
  Country: None (occurrence: None)
  Receive Date: 20081003
  Receipt Date: 20080923
  Transmission Date: 20090506
  Serious: Yes (Hospitalization)
  Sender: FDA-Public Use
  Company Number: CH-JNJFOC-20070106868

PATIENT
  Age: 49 Year
  Sex: Female

DRUGS (11)
  1. IMODIUM [Suspect]
     Indication: DRUG USE FOR UNKNOWN INDICATION
     Route: 048
  2. VIDEX EC [Suspect]
     Indication: INFECTION
     Route: 048
  3. VIDEX EC [Suspect]
     Indication: HIV INFECTION
     Route: 048
  4. SORTIS [Suspect]
     Indication: MIXED HYPERLIPIDAEMIA
     Route: 048
  5. TELZIR [Concomitant]
     Indication: INFECTION
     Route: 048
  6. TELZIR [Concomitant]
     Indication: HIV INFECTION
     Route: 048
  7. STOCRIN [Concomitant]
     Indication: INFECTION
     Route: 048
  8. STOCRIN [Concomitant]
     Indication: HIV INFECTION
     Route: 048
  9. KALETRA [Concomitant]
     Indication: INFECTION
     Route: 048
  10. KALETRA [Concomitant]
     Indication: HIV INFECTION
     Route: 048
  11. LIPANTHYL [Concomitant]
     Indication: MIXED HYPERLIPIDAEMIA
     Route: 048

REACTIONS (1)
  - PANCREATITIS [None]
